FAERS Safety Report 5055248-2 (Version None)
Quarter: 2006Q3

REPORT INFORMATION
  Report Type: 
  Country: None (occurrence: None)
  Receive Date: 20060719
  Receipt Date: 20060628
  Transmission Date: 20061208
  Serious: Yes (Hospitalization)
  Sender: FDA-Public Use
  Company Number: CH-BRISTOL-MYERS SQUIBB COMPANY-13445481

PATIENT
  Age: 64 Year
  Sex: Male

DRUGS (7)
  1. TRITTICO [Suspect]
     Indication: ANXIETY DISORDER
     Route: 048
     Dates: start: 20060303
  2. SERALIN [Suspect]
     Indication: ANXIETY DISORDER
     Route: 048
     Dates: start: 20060322
  3. ASPIRIN [Concomitant]
  4. PLAVIX [Concomitant]
  5. DIOVAN HCT [Concomitant]
  6. BELOC [Concomitant]
  7. SERESTA [Concomitant]

REACTIONS (7)
  - HOT FLUSH [None]
  - HYPERHIDROSIS [None]
  - HYPERREFLEXIA [None]
  - MYALGIA [None]
  - RESTLESSNESS [None]
  - SEROTONIN SYNDROME [None]
  - TREMOR [None]
